FAERS Safety Report 14342696 (Version 1)
Quarter: 2017Q4

REPORT INFORMATION
  Report Type: Spontaneous
  Country: US (occurrence: US)
  Receive Date: 20171229
  Receipt Date: 20171229
  Transmission Date: 20180321
  Serious: Yes (Hospitalization, Other)
  Sender: FDA-Public Use
  Company Number: None

PATIENT
  Age: 51 Year
  Sex: Male
  Weight: 119 kg

DRUGS (3)
  1. INTEGRILIN [Suspect]
     Active Substance: EPTIFIBATIDE
     Indication: ACUTE MYOCARDIAL INFARCTION
     Route: 041
     Dates: start: 20171218, end: 20171219
  2. TICAGRELOR. [Concomitant]
     Active Substance: TICAGRELOR
  3. INTEGRILIN [Suspect]
     Active Substance: EPTIFIBATIDE
     Indication: ACUTE MYOCARDIAL INFARCTION
     Dosage: ?          OTHER FREQUENCY:TWICE;?
     Route: 040
     Dates: start: 20171218, end: 20171219

REACTIONS (5)
  - Chest pain [None]
  - Gingival bleeding [None]
  - Thrombocytopenia [None]
  - Electrocardiogram ST segment elevation [None]
  - Thrombosis [None]

NARRATIVE: CASE EVENT DATE: 20171219
